FAERS Safety Report 24382898 (Version 1)
Quarter: 2024Q4

REPORT INFORMATION
  Report Type: Report from Study
  Country: EG (occurrence: EG)
  Receive Date: 20241001
  Receipt Date: 20241001
  Transmission Date: 20250115
  Serious: Yes (Death, Other)
  Sender: SANDOZ
  Company Number: EG-SANDOZ-SDZ2024EG031072

PATIENT
  Age: 58 Year
  Sex: Female

DRUGS (1)
  1. HYRIMOZ [Suspect]
     Active Substance: ADALIMUMAB-ADAZ
     Indication: Rheumatoid arthritis
     Dosage: UNK
     Route: 058
     Dates: start: 20210301, end: 20240318

REACTIONS (7)
  - Cartilage operation [Fatal]
  - Impaired healing [Fatal]
  - Decreased immune responsiveness [Fatal]
  - Death [Fatal]
  - Rheumatoid arthritis [Unknown]
  - Therapy cessation [Unknown]
  - Treatment noncompliance [Unknown]

NARRATIVE: CASE EVENT DATE: 20240909
